FAERS Safety Report 8829225 (Version 2)
Quarter: 2014Q1

REPORT INFORMATION
  Report Type: Report from Study
  Country: US (occurrence: US)
  Receive Date: 20121008
  Receipt Date: 20140128
  Transmission Date: 20141002
  Serious: No
  Sender: FDA-Public Use
  Company Number: US-ROCHE-1139105

PATIENT
  Sex: 0

DRUGS (4)
  1. MYCOPHENOLATE MOFETIL [Suspect]
     Indication: IMMUNOSUPPRESSION
     Route: 065
  2. PREDNISONE [Suspect]
     Indication: IMMUNOSUPPRESSION
     Route: 065
  3. GANCICLOVIR [Suspect]
     Indication: IMMUNOSUPPRESSION
     Route: 065
  4. VALGANCICLOVIR [Concomitant]
     Dosage: 900 MG/DAY OR THE RENALLY ADJUSTED EQUIVALENT
     Route: 065

REACTIONS (2)
  - Cytomegalovirus infection [Unknown]
  - Neutropenia [Unknown]
